FAERS Safety Report 8423633-4 (Version None)
Quarter: 2012Q2

REPORT INFORMATION
  Report Type: 
  Country: None (occurrence: None)
  Receive Date: 20120608
  Receipt Date: 20120606
  Transmission Date: 20120825
  Serious: Yes (Hospitalization)
  Sender: FDA-Public Use
  Company Number: IL-PFIZER INC-2012112672

PATIENT
  Age: 70 Year
  Sex: Female

DRUGS (3)
  1. TEGRETOL [Concomitant]
  2. GABAPENTIN [Concomitant]
  3. LYRICA [Suspect]
     Indication: POST HERPETIC NEURALGIA
     Dosage: UNK

REACTIONS (2)
  - SYNCOPE [None]
  - ATRIOVENTRICULAR BLOCK [None]
